FAERS Safety Report 7983897-8 (Version None)
Quarter: 2011Q4

REPORT INFORMATION
  Report Type: 
  Country: None (occurrence: None)
  Receive Date: 20111216
  Receipt Date: 20111209
  Transmission Date: 20120403
  Serious: No
  Sender: FDA-Public Use
  Company Number: US-BIOGENIDEC-2011BI046939

PATIENT
  Sex: Female

DRUGS (3)
  1. BISMUTH SUBSALICYLATE [Concomitant]
     Indication: GASTRIC DISORDER
     Route: 048
     Dates: start: 20110101
  2. TYSABRI [Suspect]
     Indication: MULTIPLE SCLEROSIS
     Route: 042
     Dates: start: 20111027
  3. HERBAL PROBIOTICS [Concomitant]
     Indication: GASTRIC DISORDER
     Route: 048
     Dates: start: 20110101

REACTIONS (3)
  - CONSTIPATION [None]
  - ABDOMINAL PAIN LOWER [None]
  - DIARRHOEA [None]
